FAERS Safety Report 5991745-0 (Version None)
Quarter: 2008Q4

REPORT INFORMATION
  Report Type: 
  Country: None (occurrence: None)
  Receive Date: 20081211
  Receipt Date: 20080505
  Transmission Date: 20090506
  Serious: No
  Sender: FDA-Public Use
  Company Number: US-AMGEN-KDL277746

PATIENT
  Sex: Female

DRUGS (2)
  1. ENBREL [Suspect]
     Indication: PSORIATIC ARTHROPATHY
     Route: 058
     Dates: start: 20070301
  2. ENBREL [Suspect]
     Indication: PSORIASIS

REACTIONS (4)
  - DRUG EFFECT DECREASED [None]
  - MEMORY IMPAIRMENT [None]
  - PSORIASIS [None]
  - PSORIATIC ARTHROPATHY [None]
